FAERS Safety Report 8975391 (Version 1)
Quarter: 2012Q4

REPORT INFORMATION
  Report Type: 
  Country: CA (occurrence: CA)
  Receive Date: 20121219
  Receipt Date: 20121219
  Transmission Date: 20130627
  Serious: Yes (Other)
  Sender: FDA-Public Use
  Company Number: CA-PFIZER INC-2012320221

PATIENT
  Sex: Female

DRUGS (3)
  1. EFFEXOR XR [Suspect]
     Dosage: UNK
     Dates: start: 2002
  2. EFFEXOR XR [Suspect]
     Dosage: 75 mg, UNK
  3. EFFEXOR XR [Suspect]
     Dosage: 150 mg, UNK

REACTIONS (2)
  - Extrasystoles [Unknown]
  - Cardiac disorder [Unknown]
